FAERS Safety Report 9993180 (Version 1)
Quarter: 2014Q1

REPORT INFORMATION
  Report Type: Not Available
  Country: FR (occurrence: FR)
  Receive Date: 20140310
  Receipt Date: 20140310
  Transmission Date: 20141002
  Serious: Yes (Hospitalization)
  Sender: FDA-Public Use
  Company Number: FR-NAPPMUNDI-GBR-2014-0017254

PATIENT
  Age: 17 Year
  Sex: Male

DRUGS (4)
  1. OXYCONTIN [Suspect]
     Indication: PRODUCT USED FOR UNKNOWN INDICATION
     Dosage: 260 MG IN TOTAL
     Route: 048
     Dates: start: 20131226, end: 20131226
  2. TRAMADOL HCL [Suspect]
     Indication: PRODUCT USED FOR UNKNOWN INDICATION
     Dosage: 1400 TO 1800MG  ONCE
     Route: 065
     Dates: start: 20131226, end: 20131226
  3. ATARAX [Suspect]
     Indication: PRODUCT USED FOR UNKNOWN INDICATION
     Dosage: 750 MG, SINGLE
     Route: 065
     Dates: start: 20131226, end: 20131226
  4. DONORMYL [Suspect]
     Indication: PRODUCT USED FOR UNKNOWN INDICATION
     Dosage: 150 MG, SINGLE
     Route: 065
     Dates: start: 20131226, end: 20131226

REACTIONS (5)
  - Intentional overdose [Recovered/Resolved]
  - Serotonin syndrome [Recovered/Resolved]
  - Somnolence [Recovered/Resolved]
  - Dyspnoea [None]
  - Rash [None]
